FAERS Safety Report 23511024 (Version 1)
Quarter: 2024Q1

REPORT INFORMATION
  Report Type: Spontaneous
  Country: US (occurrence: US)
  Receive Date: 20240212
  Receipt Date: 20240212
  Transmission Date: 20240409
  Serious: No
  Sender: FDA-Public Use
  Company Number: US-TEVA-VS-3137844

PATIENT
  Age: 66 Year

DRUGS (2)
  1. AUSTEDO [Suspect]
     Active Substance: DEUTETRABENAZINE
     Indication: Huntington^s disease
     Route: 065
     Dates: start: 2023, end: 2023
  2. OLANZAPINE [Concomitant]
     Active Substance: OLANZAPINE
     Indication: Bruxism

REACTIONS (1)
  - Drug ineffective [Unknown]
